FAERS Safety Report 25714893 (Version 2)
Quarter: 2025Q3

REPORT INFORMATION
  Report Type: Spontaneous
  Country: EU (occurrence: EU)
  Receive Date: 20250822
  Receipt Date: 20250930
  Transmission Date: 20251020
  Serious: Yes (Other)
  Sender: SANOFI AVENTIS
  Company Number: None

PATIENT
  Age: 37 Year
  Sex: Male

DRUGS (6)
  1. SULFASALAZINE [Suspect]
     Active Substance: SULFASALAZINE
  2. METHOTREXATE [Suspect]
     Active Substance: METHOTREXATE
  3. LEFLUNOMIDE [Suspect]
     Active Substance: LEFLUNOMIDE
     Dates: start: 201505, end: 201506
  4. CYCLOSPORINE [Suspect]
     Active Substance: CYCLOSPORINE
     Dosage: 100 MG, PER DAY
  5. CHLOROQUINE [Concomitant]
     Active Substance: CHLOROQUINE
  6. CORTICOSTEROID NOS [Concomitant]
     Active Substance: CORTICOSTEROID NOS
     Dosage: 4 MG, QD
     Dates: start: 2013

REACTIONS (2)
  - Leukopenia [Unknown]
  - Transaminases increased [Unknown]
